FAERS Safety Report 4816902-8 (Version None)
Quarter: 2005Q4

REPORT INFORMATION
  Report Type: 
  Country: None (occurrence: None)
  Receive Date: 20051031
  Receipt Date: 20051031
  Transmission Date: 20060501
  Serious: Yes (Hospitalization)
  Sender: FDA-Public Use
  Company Number: None

PATIENT
  Age: 61 Year
  Sex: Male

DRUGS (3)
  1. TERAZOSIN [Suspect]
     Indication: BENIGN PROSTATIC HYPERPLASIA
     Dosage: 5 MG QHS
     Dates: start: 20041001
  2. OMEPRAZOLE [Concomitant]
  3. RANITIDINE [Concomitant]

REACTIONS (1)
  - ORTHOSTATIC HYPOTENSION [None]
